FAERS Safety Report 8309905 (Version 2)
Quarter: 2014Q1

REPORT INFORMATION
  Report Type: Spontaneous
  Country: US (occurrence: US)
  Receive Date: 20111223
  Receipt Date: 20140220
  Transmission Date: 20141002
  Serious: Yes (Hospitalization, Other)
  Sender: FDA-Public Use
  Company Number: US-AMGEN-USASP2011067798

PATIENT
  Age: 59 Year
  Sex: Female

DRUGS (1)
  1. ENBREL [Suspect]
     Indication: RHEUMATOID ARTHRITIS
     Dosage: 50 MG, QWK
     Route: 065
     Dates: start: 20100415, end: 201401

REACTIONS (10)
  - Pneumothorax [Recovered/Resolved]
  - Upper limb fracture [Not Recovered/Not Resolved]
  - Pulmonary mass [Recovered/Resolved]
  - Rheumatoid arthritis [Not Recovered/Not Resolved]
  - Finger deformity [Not Recovered/Not Resolved]
  - Foot deformity [Not Recovered/Not Resolved]
  - Bunion [Not Recovered/Not Resolved]
  - Fall [Not Recovered/Not Resolved]
  - Arthropathy [Not Recovered/Not Resolved]
  - Ear disorder [Not Recovered/Not Resolved]
